FAERS Safety Report 8246010-8 (Version None)
Quarter: 2012Q1

REPORT INFORMATION
  Report Type: 
  Country: None (occurrence: None)
  Receive Date: 20120330
  Receipt Date: 20101206
  Transmission Date: 20120608
  Serious: Yes (Other)
  Sender: FDA-Public Use
  Company Number: US-BAYER-201016613NA

PATIENT
  Age: 51 Year
  Sex: Female
  Weight: 94 kg

DRUGS (20)
  1. SENSIPAR [Concomitant]
     Route: 048
  2. RENAGEL [Concomitant]
     Dates: start: 20021014
  3. EVISTA [Concomitant]
  4. EPOGEN [Concomitant]
     Indication: ANAEMIA
     Dosage: AS NEEDED FOR DIALYSIS
  5. PROHANCE [Suspect]
     Indication: IMAGING PROCEDURE
  6. PROCRIT [Concomitant]
     Dates: start: 20021015
  7. ASPIRIN [Concomitant]
  8. WARFARIN SODIUM [Concomitant]
  9. LIPITOR [Concomitant]
  10. MULTIHANCE [Suspect]
     Indication: IMAGING PROCEDURE
  11. COUMADIN [Concomitant]
  12. MAGNEVIST [Suspect]
     Indication: NUCLEAR MAGNETIC RESONANCE IMAGING BRAIN
     Dates: start: 20020403, end: 20020403
  13. CALCIUM CARBONATE [Concomitant]
  14. MAGNEVIST [Suspect]
     Indication: HYPOAESTHESIA
  15. OMNISCAN [Suspect]
     Indication: IMAGING PROCEDURE
  16. IRON [IRON] [Concomitant]
     Indication: ANAEMIA PROPHYLAXIS
  17. ANTIBIOTICS [Concomitant]
  18. OPTIMARK [Suspect]
     Indication: IMAGING PROCEDURE
  19. RENAL [VITAMINS NOS] [Concomitant]
     Indication: VITAMIN SUPPLEMENTATION
     Route: 048
  20. NEXIUM [Concomitant]

REACTIONS (21)
  - SKIN TIGHTNESS [None]
  - SKIN DISORDER [None]
  - SKIN INDURATION [None]
  - JOINT STIFFNESS [None]
  - MUSCLE TIGHTNESS [None]
  - MOBILITY DECREASED [None]
  - MUSCLE CONTRACTURE [None]
  - SKIN FIBROSIS [None]
  - PAIN IN EXTREMITY [None]
  - OEDEMA PERIPHERAL [None]
  - PAIN [None]
  - OEDEMA [None]
  - MUSCULOSKELETAL STIFFNESS [None]
  - MUSCULAR WEAKNESS [None]
  - DYSPNOEA [None]
  - NEPHROGENIC SYSTEMIC FIBROSIS [None]
  - SCAR [None]
  - SKIN HYPERTROPHY [None]
  - JOINT SWELLING [None]
  - DEFORMITY [None]
  - ARTHRALGIA [None]
